FAERS Safety Report 5276869-8 (Version None)
Quarter: 2007Q1

REPORT INFORMATION
  Report Type: 
  Country: None (occurrence: None)
  Receive Date: 20070321
  Receipt Date: 20070306
  Transmission Date: 20070707
  Serious: Yes (Other)
  Sender: FDA-Public Use
  Company Number: 2007S1001938

PATIENT
  Age: 43 Year
  Sex: Male
  Weight: 90.7194 kg

DRUGS (5)
  1. FENTANYL TRANSDERMAL SYSTEM [Suspect]
     Indication: BACK PAIN
     Dosage: 150 UG/HR EVERY OTHER DAY; TRANSDERMAL
     Route: 062
     Dates: start: 20070122, end: 20070101
  2. HYDROCODONE BITARTRATE AND ACETAMINOPHEN (CON.) [Concomitant]
  3. DIAZEPAM (CON.) [Concomitant]
  4. PAROXETINE (CON.) [Concomitant]
  5. ACETYLSALICYLIC ACID (CON.) [Concomitant]

REACTIONS (7)
  - ANXIETY [None]
  - DRUG INEFFECTIVE [None]
  - DRUG WITHDRAWAL SYNDROME [None]
  - PAIN [None]
  - PHARMACEUTICAL PRODUCT COMPLAINT [None]
  - THERAPEUTIC RESPONSE UNEXPECTED WITH DRUG SUBSTITUTION [None]
  - TREMOR [None]
